FAERS Safety Report 22090321 (Version 1)
Quarter: 2023Q1

REPORT INFORMATION
  Report Type: Spontaneous
  Country: FI (occurrence: FI)
  Receive Date: 20230313
  Receipt Date: 20230313
  Transmission Date: 20230418
  Serious: Yes (Other)
  Sender: FDA-Public Use
  Company Number: FI-THERAMEX-2023000012

PATIENT
  Age: 22 Year
  Sex: Female
  Weight: 39 kg

DRUGS (7)
  1. SERTRALINE [Suspect]
     Active Substance: SERTRALINE HYDROCHLORIDE
     Indication: Product used for unknown indication
     Dosage: 50 MG (SERTRALIN 50MG 1/2PILL OD (EVERY DAY)
     Route: 065
     Dates: start: 20180417
  2. ESTRADIOL\NOMEGESTROL ACETATE [Suspect]
     Active Substance: ESTRADIOL\NOMEGESTROL ACETATE
     Indication: Premature menopause
     Dosage: UNK (ZOELY MEDICATION WAS SUSPENDED 2 WEEKS AGO)
     Route: 065
     Dates: start: 201802, end: 20230110
  3. ACIPIMOX [Suspect]
     Active Substance: ACIPIMOX
     Indication: Product used for unknown indication
     Dosage: 1 DOSAGE FORM, QD (OLBETAM 250MG1X1)
     Route: 065
     Dates: start: 20221118
  4. ACIPIMOX [Suspect]
     Active Substance: ACIPIMOX
     Dosage: 1 DOSAGE FORM, QD (OLBETAM 250MG1X1)
     Route: 065
     Dates: start: 20221125
  5. ACIPIMOX [Suspect]
     Active Substance: ACIPIMOX
     Dosage: 1 DOSAGE FORM, QOD (OLBETAM 250MG1X2)
     Route: 065
     Dates: start: 20221130
  6. METFORMIN HYDROCHLORIDE [Suspect]
     Active Substance: METFORMIN HYDROCHLORIDE
     Indication: Product used for unknown indication
     Dosage: 500 MILLIGRAM (METFOREM 500MGOD (EVERY DAY)
     Route: 065
     Dates: start: 20220706
  7. FENOFIBRATE [Concomitant]
     Active Substance: FENOFIBRATE
     Indication: Product used for unknown indication
     Dosage: 145 MILLIGRAM (LIPANTHYL PENTA145MG OD (EVERY DAY)
     Route: 065
     Dates: start: 20230123

REACTIONS (2)
  - Blood triglycerides increased [Unknown]
  - Pancreatitis [Unknown]

NARRATIVE: CASE EVENT DATE: 20220901
